FAERS Safety Report 24458002 (Version 1)
Quarter: 2024Q4

REPORT INFORMATION
  Report Type: Spontaneous
  Country: CN (occurrence: CN)
  Receive Date: 20241018
  Receipt Date: 20241018
  Transmission Date: 20250115
  Serious: No
  Sender: ROCHE
  Company Number: CN-BoehringerIngelheim-2023-BI-262859

PATIENT
  Age: 62 Year
  Sex: Male
  Weight: 56.0 kg

DRUGS (3)
  1. ALTEPLASE [Suspect]
     Active Substance: ALTEPLASE
     Indication: Cerebral infarction
     Route: 042
     Dates: start: 20230914, end: 20230914
  2. URAPIDIL [Concomitant]
     Active Substance: URAPIDIL
     Indication: Hypertensive crisis
     Route: 042
     Dates: start: 20230914, end: 20230914
  3. NIMODIPINE [Concomitant]
     Active Substance: NIMODIPINE
     Indication: Hypertensive crisis
     Route: 048
     Dates: start: 20230914, end: 20230914

REACTIONS (5)
  - Tongue oedema [Not Recovered/Not Resolved]
  - Gingival bleeding [Not Recovered/Not Resolved]
  - Mouth haemorrhage [Not Recovered/Not Resolved]
  - Somnolence [Not Recovered/Not Resolved]
  - Vomiting [Not Recovered/Not Resolved]

NARRATIVE: CASE EVENT DATE: 20230914
